FAERS Safety Report 21528612 (Version 1)
Quarter: 2022Q4

REPORT INFORMATION
  Report Type: Spontaneous
  Country: SE (occurrence: SE)
  Receive Date: 20221031
  Receipt Date: 20221031
  Transmission Date: 20230113
  Serious: Yes (Hospitalization, Other)
  Sender: FDA-Public Use
  Company Number: SE-SA-2022SA423577

PATIENT
  Sex: Female

DRUGS (11)
  1. OLANZAPINE [Suspect]
     Active Substance: OLANZAPINE
     Indication: Product used for unknown indication
     Dosage: UNK UNK, UNKNOWN (STRENGTH: 15 MG)
     Route: 065
  2. OLANZAPINE [Suspect]
     Active Substance: OLANZAPINE
     Dosage: UNK UNK, UNKNOWN (STRENGTH: 10 MG)
     Route: 065
     Dates: start: 2021, end: 202111
  3. VALPROIC ACID [Suspect]
     Active Substance: VALPROIC ACID
     Indication: Bipolar disorder
     Dosage: UNK UNK, UNKNOWN (STRENGTH: 1200 MG)
     Route: 065
     Dates: start: 2011
  4. VALPROIC ACID [Suspect]
     Active Substance: VALPROIC ACID
     Dosage: UNK UNK, UNKNOWN (STRENGTH: 1500 MG)
     Route: 065
  5. ELASOMERAN [Suspect]
     Active Substance: ELASOMERAN
     Indication: Product used for unknown indication
     Dosage: UNK UNK, UNKNOWN (MRNA VACCINE)
     Route: 065
     Dates: start: 2021, end: 2021
  6. ELASOMERAN [Suspect]
     Active Substance: ELASOMERAN
     Dosage: UNK UNK, UNKNOWN (MRNA VACCINE)
     Route: 065
     Dates: start: 202201, end: 202201
  7. LITHIUM SULFATE [Suspect]
     Active Substance: LITHIUM SULFATE
     Indication: Product used for unknown indication
     Dosage: UNK UNK, UNKNOWN (LITHIUM VARIDE 0.6)
     Route: 065
  8. CLOZAPINE [Suspect]
     Active Substance: CLOZAPINE
     Indication: Product used for unknown indication
     Dosage: UNK UNK, UNKNOWN (STRENGTH: 250 MG)
     Route: 065
  9. CLOZAPINE [Suspect]
     Active Substance: CLOZAPINE
     Dosage: 12.5 MG, QW (375 MG)
     Route: 065
     Dates: start: 202204
  10. CLOZAPINE [Suspect]
     Active Substance: CLOZAPINE
     Dosage: 400 MG, UNKNOWN
     Route: 065
     Dates: start: 2007
  11. CLOZAPINE [Suspect]
     Active Substance: CLOZAPINE
     Dosage: 300 MG, UNKNOWN
     Route: 065
     Dates: start: 202208

REACTIONS (1)
  - Petit mal epilepsy [Unknown]

NARRATIVE: CASE EVENT DATE: 20210101
